FAERS Safety Report 11458981 (Version 2)
Quarter: 2015Q4

REPORT INFORMATION
  Report Type: Spontaneous
  Country: US (occurrence: US)
  Receive Date: 20150904
  Receipt Date: 20151019
  Transmission Date: 20160304
  Serious: Yes (Other)
  Sender: FDA-Public Use
  Company Number: US-JNJFOC-20150822732

PATIENT
  Age: 66 Year
  Sex: Female
  Weight: 70.04 kg

DRUGS (14)
  1. ULTRAM [Suspect]
     Active Substance: TRAMADOL HYDROCHLORIDE
     Indication: ARTHRALGIA
     Route: 048
     Dates: start: 20150424
  2. METFORMIN [Concomitant]
     Active Substance: METFORMIN HYDROCHLORIDE
     Indication: DIABETES MELLITUS
     Route: 048
     Dates: start: 20150330
  3. ULTRAM [Suspect]
     Active Substance: TRAMADOL HYDROCHLORIDE
     Indication: ARTHRALGIA
     Route: 048
     Dates: start: 2004, end: 20150423
  4. HYDROCODONE [Suspect]
     Active Substance: HYDROCODONE
     Indication: ARTHRALGIA
     Route: 048
     Dates: start: 20150424, end: 20150501
  5. NEXIUM [Concomitant]
     Active Substance: ESOMEPRAZOLE MAGNESIUM
     Indication: GASTROINTESTINAL DISORDER THERAPY
     Route: 065
  6. ALEVE [Concomitant]
     Active Substance: NAPROXEN SODIUM
     Indication: ARTHRALGIA
     Route: 048
     Dates: start: 2014
  7. SYNTHROID [Concomitant]
     Active Substance: LEVOTHYROXINE SODIUM
     Indication: HYPOTHYROIDISM
     Route: 048
     Dates: start: 20150330
  8. XOLAIR [Concomitant]
     Active Substance: OMALIZUMAB
     Indication: MULTIPLE ALLERGIES
     Route: 065
     Dates: start: 201503
  9. HYDROCODONE [Suspect]
     Active Substance: HYDROCODONE
     Indication: ARTHRALGIA
     Route: 048
     Dates: start: 1994, end: 20150423
  10. FORMOTEROL FUMARATE [Concomitant]
     Active Substance: FORMOTEROL FUMARATE
     Indication: ASTHMA
     Route: 055
     Dates: start: 2013
  11. FEXOFENADINE W/PSEUDOEPHEDRINE HYDROCHLORIDE [Concomitant]
     Indication: SEASONAL ALLERGY
     Route: 048
     Dates: start: 2013
  12. XANAX [Suspect]
     Active Substance: ALPRAZOLAM
     Indication: ANXIETY
     Route: 048
     Dates: start: 2013
  13. ZOLOFT [Concomitant]
     Active Substance: SERTRALINE HYDROCHLORIDE
     Indication: DEPRESSION
     Route: 048
     Dates: start: 1986
  14. FLUTICASONE PROPIONATE. [Concomitant]
     Active Substance: FLUTICASONE PROPIONATE
     Indication: SEASONAL ALLERGY
     Route: 045
     Dates: start: 2014

REACTIONS (3)
  - Fall [Recovered/Resolved]
  - Bunion operation [Recovered/Resolved]
  - Angina pectoris [Not Recovered/Not Resolved]

NARRATIVE: CASE EVENT DATE: 2013
